FAERS Safety Report 4777628-2 (Version None)
Quarter: 2005Q3

REPORT INFORMATION
  Report Type: 
  Country: None (occurrence: None)
  Receive Date: 20050921
  Receipt Date: 20050906
  Transmission Date: 20060218
  Serious: Yes (Hospitalization)
  Sender: FDA-Public Use
  Company Number: USA0509107318

PATIENT
  Sex: Female

DRUGS (2)
  1. CYMBALTA [Suspect]
     Dates: start: 20050501, end: 20050501
  2. PROZAC  (FLUOXDTINE HYDROCHLORIDE) [Concomitant]

REACTIONS (3)
  - HALLUCINATION [None]
  - SOMNOLENCE [None]
  - THINKING ABNORMAL [None]
